FAERS Safety Report 13426946 (Version 1)
Quarter: 2017Q2

REPORT INFORMATION
  Report Type: Spontaneous
  Country: US (occurrence: US)
  Receive Date: 20170411
  Receipt Date: 20170411
  Transmission Date: 20170830
  Serious: Yes (Other)
  Sender: FDA-Public Use
  Company Number: None

PATIENT
  Age: 42 Year
  Sex: Female

DRUGS (1)
  1. PRALUENT [Suspect]
     Active Substance: ALIROCUMAB
     Indication: TYPE V HYPERLIPIDAEMIA
     Dosage: ?          OTHER FREQUENCY:EVERY 2 WEEK;?
     Route: 058
     Dates: start: 20161014, end: 20170326

REACTIONS (3)
  - Myalgia [None]
  - Muscle spasms [None]
  - Chromaturia [None]

NARRATIVE: CASE EVENT DATE: 20170326
